FAERS Safety Report 9470549 (Version 3)
Quarter: 2013Q3

REPORT INFORMATION
  Report Type: Spontaneous
  Country: JP (occurrence: JP)
  Receive Date: 20130822
  Receipt Date: 20130927
  Transmission Date: 20140515
  Serious: Yes (Hospitalization, Other)
  Sender: FDA-Public Use
  Company Number: JP-PFIZER INC-2013241077

PATIENT
  Age: 4 Year
  Sex: Male
  Weight: 16 kg

DRUGS (6)
  1. FOSPHENYTOIN SODIUM [Suspect]
     Indication: STATUS EPILEPTICUS
     Dosage: 360MG DAILY
     Route: 041
     Dates: start: 20130701, end: 20130701
  2. FOSPHENYTOIN SODIUM [Suspect]
     Dosage: 100MG DAILY
     Route: 041
     Dates: start: 20130702, end: 20130702
  3. DIACOMIT [Suspect]
     Indication: CONVULSION
     Dosage: 300 MG, UNK
     Route: 048
     Dates: start: 20130510
  4. DIAPP [Concomitant]
     Indication: CONVULSION
     Dosage: 6 MG, AS NEEDED
     Route: 054
     Dates: start: 20130701
  5. DEPAKENE [Concomitant]
     Indication: CONVULSION
     Dosage: 500 MG, UNK
     Route: 048
  6. MYSTAN [Concomitant]
     Indication: CONVULSION
     Dosage: 19.8 MG, UNK
     Route: 048

REACTIONS (1)
  - Blood creatine phosphokinase increased [Recovered/Resolved]
